FAERS Safety Report 6161712-5 (Version None)
Quarter: 2009Q2

REPORT INFORMATION
  Report Type: 
  Country: None (occurrence: None)
  Receive Date: 20090421
  Receipt Date: 20090414
  Transmission Date: 20091009
  Serious: Yes (Death, Hospitalization)
  Sender: FDA-Public Use
  Company Number: FR-CELGENEUS-056-50794-09041409

PATIENT
  Sex: Male
  Weight: 97 kg

DRUGS (5)
  1. VIDAZA [Suspect]
     Indication: MYELODYSPLASTIC SYNDROME
     Route: 058
     Dates: start: 20080929, end: 20081003
  2. VIDAZA [Suspect]
     Indication: REFRACTORY ANAEMIA WITH AN EXCESS OF BLASTS
  3. VORICONAZOLE [Concomitant]
     Route: 048
     Dates: start: 20080904, end: 20080928
  4. TRITACE [Concomitant]
     Indication: HYPERTENSION
     Route: 048
     Dates: start: 20080811, end: 20081023
  5. BACTRIM [Concomitant]
     Indication: PROPHYLAXIS
     Route: 048
     Dates: start: 20080811, end: 20081023

REACTIONS (3)
  - PERITONEAL HAEMORRHAGE [None]
  - SEPSIS [None]
  - THROMBOCYTOPENIA [None]
